FAERS Safety Report 21083660 (Version 2)
Quarter: 2022Q3

REPORT INFORMATION
  Report Type: Spontaneous
  Country: US (occurrence: US)
  Receive Date: 20220714
  Receipt Date: 20220719
  Transmission Date: 20221026
  Serious: Yes (Other)
  Sender: FDA-Public Use
  Company Number: US-PFIZER INC-PV202200021993

PATIENT
  Age: 56 Year
  Sex: Female
  Weight: 57.1 kg

DRUGS (11)
  1. HYDROCORTISONE [Interacting]
     Active Substance: HYDROCORTISONE
     Indication: Addison^s disease
     Dosage: 20 MG, DAILY (HYDROCORTISONE 10 MG IN THE MORNING, 5 MG AT NOON, AND 5 MG AT 4 PM)
  2. MORPHINE SULFATE [Interacting]
     Active Substance: MORPHINE SULFATE
     Indication: Pain
     Dosage: 60 MG, 1X/DAY
     Route: 048
     Dates: start: 20220310, end: 20220326
  3. GABAPENTIN [Concomitant]
     Active Substance: GABAPENTIN
     Dosage: 300 MG
  4. XANAX [Concomitant]
     Active Substance: ALPRAZOLAM
     Dosage: 0.25 MG
  5. RESTORIL [Concomitant]
     Active Substance: TEMAZEPAM
     Dosage: UNK, (RESTORIL (TEMAZEPAM) AT ^30,^ ^RESCUE^)
  6. NORCO [Concomitant]
     Active Substance: ACETAMINOPHEN\HYDROCODONE BITARTRATE
     Dosage: UNK, 10-325 MG
  7. REMERON [Concomitant]
     Active Substance: MIRTAZAPINE
     Dosage: UNK(AT 15 MG ALTERNATING WITH 30 MG AT NIGHT)
  8. ELAVIL [Concomitant]
     Active Substance: AMITRIPTYLINE HYDROCHLORIDE
     Dosage: 10 MG, (AT 10 MG NIGHT WITH GABAPENTIN AND REMERON)
  9. MIDODRINE [Concomitant]
     Active Substance: MIDODRINE
     Dosage: 5 MG, 4X/DAY (1 TO 4 TIMES PER DAY)
  10. ADDERALL [Concomitant]
     Active Substance: AMPHETAMINE ASPARTATE\AMPHETAMINE SULFATE\DEXTROAMPHETAMINE SACCHARATE\DEXTROAMPHETAMINE SULFATE
     Dosage: 20 MG, 2X/DAY (AT 20 MG, 2 TIMES DAILY AT LIKE 8 AM AND 12 PM)
  11. MAXALT [Concomitant]
     Active Substance: RIZATRIPTAN BENZOATE
     Indication: Occipital neuralgia
     Dosage: 10 MG, (AT 10 MG UNDER THE TONGUE)

REACTIONS (27)
  - Syncope [Recovered/Resolved]
  - Sudden onset of sleep [Recovered/Resolved]
  - Vagus nerve disorder [Recovered/Resolved]
  - Hypoxia [Recovered/Resolved]
  - Foot fracture [Not Recovered/Not Resolved]
  - Clavicle fracture [Not Recovered/Not Resolved]
  - Autonomic nervous system imbalance [Recovered/Resolved]
  - Drug withdrawal syndrome [Recovered/Resolved]
  - Inappropriate schedule of product discontinuation [Unknown]
  - Wrong technique in product usage process [Unknown]
  - Weight decreased [Recovered/Resolved]
  - Blood glucose increased [Recovered/Resolved]
  - Drug interaction [Recovered/Resolved]
  - Retching [Recovered/Resolved]
  - Poor quality sleep [Recovered/Resolved]
  - Feeding disorder [Recovered/Resolved]
  - Pain [Recovered/Resolved]
  - Feeling cold [Recovered/Resolved]
  - Postural orthostatic tachycardia syndrome [Recovered/Resolved]
  - Hypotension [Recovered/Resolved]
  - Malaise [Recovered/Resolved]
  - Dizziness [Recovered/Resolved]
  - Nausea [Recovered/Resolved]
  - Headache [Recovered/Resolved]
  - Decreased appetite [Recovered/Resolved]
  - Asthenia [Recovered/Resolved]
  - Diarrhoea [Recovered/Resolved]
